FAERS Safety Report 22373132 (Version 4)
Quarter: 2023Q4

REPORT INFORMATION
  Report Type: Spontaneous
  Country: CA (occurrence: CA)
  Receive Date: 20230526
  Receipt Date: 20231123
  Transmission Date: 20240109
  Serious: Yes (Life-Threatening, Hospitalization, Other)
  Sender: FDA-Public Use
  Company Number: None

PATIENT
  Age: 56 Year
  Sex: Male

DRUGS (396)
  1. HYDROMORPHONE HYDROCHLORIDE [Suspect]
     Active Substance: HYDROMORPHONE HYDROCHLORIDE
     Indication: Product used for unknown indication
     Dosage: UNK
     Route: 065
  2. CODEINE [Suspect]
     Active Substance: CODEINE
     Indication: Product used for unknown indication
     Dosage: UNK
     Route: 065
  3. ACETAMINOPHEN [Suspect]
     Active Substance: ACETAMINOPHEN
     Indication: Product used for unknown indication
     Dosage: 160 MILLIGRAM
     Route: 065
  4. ACETAMINOPHEN [Suspect]
     Active Substance: ACETAMINOPHEN
     Indication: Prinzmetal angina
     Dosage: UNK
     Route: 065
  5. ACETAMINOPHEN [Suspect]
     Active Substance: ACETAMINOPHEN
     Indication: Migraine
  6. ACETAMINOPHEN\CODEINE PHOSPHATE [Suspect]
     Active Substance: ACETAMINOPHEN\CODEINE PHOSPHATE
     Indication: Product used for unknown indication
     Dosage: 1 EVERY 6 HRS
     Route: 065
  7. ACETAMINOPHEN\CODEINE PHOSPHATE [Suspect]
     Active Substance: ACETAMINOPHEN\CODEINE PHOSPHATE
     Indication: Prinzmetal angina
     Dosage: 1 EVERY 4 DAY
     Route: 048
  8. ACETAMINOPHEN\CODEINE PHOSPHATE [Suspect]
     Active Substance: ACETAMINOPHEN\CODEINE PHOSPHATE
     Indication: Migraine
     Dosage: 1 DOSAGE FORM 1 EVERY 6 HRS
     Route: 065
  9. ACETAMINOPHEN\CODEINE PHOSPHATE [Suspect]
     Active Substance: ACETAMINOPHEN\CODEINE PHOSPHATE
     Dosage: 1 DOSAGE FORM, DAILY
     Route: 048
  10. ACETAMINOPHEN AND CODEINE [Suspect]
     Active Substance: ACETAMINOPHEN\CODEINE PHOSPHATE
     Indication: Product used for unknown indication
     Dosage: 160 MILLIGRAM
     Route: 065
  11. ACETAMINOPHEN AND CODEINE [Suspect]
     Active Substance: ACETAMINOPHEN\CODEINE PHOSPHATE
     Dosage: UNK
     Route: 048
  12. ACETAMINOPHEN AND CODEINE [Suspect]
     Active Substance: ACETAMINOPHEN\CODEINE PHOSPHATE
     Dosage: 1 EVERY 4 DAY
     Route: 065
  13. ACETAMINOPHEN AND CODEINE [Suspect]
     Active Substance: ACETAMINOPHEN\CODEINE PHOSPHATE
     Dosage: 1 EVERY 1 DAYS/1 EVERY 24 HOURS
     Route: 048
  14. ACETAMINOPHEN AND CODEINE [Suspect]
     Active Substance: ACETAMINOPHEN\CODEINE PHOSPHATE
     Dosage: UNK (DOSAGE REGIMEN WAS REPORTED 2 TIMES)
     Route: 065
  15. ASPIRIN [Suspect]
     Active Substance: ASPIRIN
     Indication: Prinzmetal angina
     Dosage: UNK
     Route: 065
  16. ASPIRIN [Suspect]
     Active Substance: ASPIRIN
     Indication: Migraine
     Dosage: 1 DOSAGE FORM, DAILY
     Route: 048
  17. ASPIRIN [Suspect]
     Active Substance: ASPIRIN
     Dosage: 81 MILLIGRAM, DAILY
     Route: 065
  18. ASPIRIN [Suspect]
     Active Substance: ASPIRIN
     Dosage: 1 DOSAGE FORM
     Route: 048
  19. ASPIRIN [Suspect]
     Active Substance: ASPIRIN
     Dosage: UNK
     Route: 048
  20. ASPIRIN [Suspect]
     Active Substance: ASPIRIN
     Dosage: 81 MILLIGRAM, DAILY (1 EVERY 1 DAYS)
     Route: 065
  21. ASPIRIN [Suspect]
     Active Substance: ASPIRIN
     Dosage: 1 EVERY 1 DAYS
     Route: 065
  22. ASPIRIN [Suspect]
     Active Substance: ASPIRIN
     Dosage: UNK, DAILY (1 EVERY 1 DAYS)
     Route: 048
  23. ASPIRIN [Suspect]
     Active Substance: ASPIRIN
     Dosage: 1 DOSAGE FORM, DAILY
     Route: 065
  24. ASPIRIN [Suspect]
     Active Substance: ASPIRIN
     Dosage: 81 MILLIGRAM, DAILY (1 EVERY 1 DAYS)
     Route: 048
  25. ASPIRIN [Suspect]
     Active Substance: ASPIRIN
     Dosage: 1 DOSAGE FORM DAILY (DOSAGE REGIMEN WAS REPORTED 4 TIMES)
     Route: 065
  26. ASPIRIN [Suspect]
     Active Substance: ASPIRIN
     Dosage: 1 DOSAGE FORM
     Route: 048
  27. ASPIRIN [Suspect]
     Active Substance: ASPIRIN
     Dosage: 81 MILLIGRAM
     Route: 065
  28. ASPIRIN [Suspect]
     Active Substance: ASPIRIN
     Dosage: UNK
     Route: 048
  29. ASPIRIN [Suspect]
     Active Substance: ASPIRIN
     Dosage: 81 MILLIGRAM, DAILY (1 EVERY 1 DAYS).
     Route: 065
  30. ASPIRIN [Suspect]
     Active Substance: ASPIRIN
     Dosage: DAILY (1 EVERY 1 DAYS)
     Route: 065
  31. ASPIRIN [Suspect]
     Active Substance: ASPIRIN
     Dosage: DAILY (1 EVERY 1 DAYS) (DOSAGE REGIMEN WAS REPORTED 2 TIMES)
     Route: 048
  32. ASPIRIN [Suspect]
     Active Substance: ASPIRIN
     Dosage: 1 DOSAGE FORM DAILY (DOSAGE REGIMEN WAS REPORTED 2 TIMES)
     Route: 065
  33. ASPIRIN [Suspect]
     Active Substance: ASPIRIN
     Dosage: DAILY (1 EVERY 1 DAYS)
     Route: 048
  34. ASPIRIN [Suspect]
     Active Substance: ASPIRIN
     Dosage: 1 DOSAGE FORM DAILY
     Route: 065
  35. ALPRAZOLAM [Suspect]
     Active Substance: ALPRAZOLAM
     Indication: Product used for unknown indication
     Dosage: UNK
     Route: 065
  36. ALPRAZOLAM [Suspect]
     Active Substance: ALPRAZOLAM
     Indication: Prinzmetal angina
  37. ALPRAZOLAM [Suspect]
     Active Substance: ALPRAZOLAM
     Indication: Migraine
  38. AMLODIPINE BESYLATE [Suspect]
     Active Substance: AMLODIPINE BESYLATE
     Indication: Product used for unknown indication
     Dosage: 1.5 DOSAGE FORM, DAILY
     Route: 065
  39. AMLODIPINE BESYLATE [Suspect]
     Active Substance: AMLODIPINE BESYLATE
     Indication: Prinzmetal angina
     Dosage: 1 DOSAGE FORM, DAILY
     Route: 065
  40. AMLODIPINE BESYLATE [Suspect]
     Active Substance: AMLODIPINE BESYLATE
     Indication: Migraine
     Dosage: 1.5 DOSAGE FORM
     Route: 065
  41. AMLODIPINE BESYLATE [Suspect]
     Active Substance: AMLODIPINE BESYLATE
     Dosage: 2 DOSAGE FORM
     Route: 065
  42. AMLODIPINE BESYLATE [Suspect]
     Active Substance: AMLODIPINE BESYLATE
     Dosage: 1 DOSAGE FORM, 1 EVERY 8 HOURS
     Route: 065
  43. AMLODIPINE BESYLATE [Suspect]
     Active Substance: AMLODIPINE BESYLATE
     Dosage: 1 EVERY 1 DAYS
     Route: 065
  44. AMLODIPINE BESYLATE [Suspect]
     Active Substance: AMLODIPINE BESYLATE
     Dosage: UNK
     Route: 065
  45. AMLODIPINE BESYLATE [Suspect]
     Active Substance: AMLODIPINE BESYLATE
     Dosage: 1 DOSAGE FORM
     Route: 065
  46. AMLODIPINE BESYLATE [Suspect]
     Active Substance: AMLODIPINE BESYLATE
     Dosage: UNK (DOSAGE REGIMEN WAS REPORTED 2 TIMES)
     Route: 065
  47. AMLODIPINE BESYLATE [Suspect]
     Active Substance: AMLODIPINE BESYLATE
     Dosage: 1 EVERY 1 DAYS
     Route: 065
  48. AMLODIPINE BESYLATE [Suspect]
     Active Substance: AMLODIPINE BESYLATE
     Dosage: 1.5 DOSAGE FORM, DAILY (1 EVERY 24 HOURS) (DOSAGE REGIMEN WAS REPORTED 3 TIMES)
     Route: 065
  49. AMLODIPINE BESYLATE [Suspect]
     Active Substance: AMLODIPINE BESYLATE
     Dosage: 1 DOSAGE FORM 1 EVERY 8 HOURS
     Route: 065
  50. TRAZODONE HYDROCHLORIDE [Suspect]
     Active Substance: TRAZODONE HYDROCHLORIDE
     Indication: Product used for unknown indication
     Dosage: 1 DOSAGE FORM
     Route: 065
  51. TRAZODONE HYDROCHLORIDE [Suspect]
     Active Substance: TRAZODONE HYDROCHLORIDE
     Dosage: 1 DOSAGE FORM, DAILY
     Route: 048
  52. TRAZODONE HYDROCHLORIDE [Suspect]
     Active Substance: TRAZODONE HYDROCHLORIDE
     Dosage: 1 DOSAGE FORM, DAILY (1 EVERY 1 DAYS)
     Route: 065
  53. TRAZODONE HYDROCHLORIDE [Suspect]
     Active Substance: TRAZODONE HYDROCHLORIDE
     Dosage: UNK
     Route: 065
  54. ASPIRIN [Suspect]
     Active Substance: ASPIRIN
     Indication: Prinzmetal angina
     Dosage: 1 DOSAGE FORM
     Route: 065
  55. ASPIRIN [Suspect]
     Active Substance: ASPIRIN
     Dosage: 1 DOSAGE FORM
     Route: 048
  56. ASPIRIN [Suspect]
     Active Substance: ASPIRIN
     Dosage: 81 MILLIGRAM
     Route: 065
  57. TICAGRELOR [Suspect]
     Active Substance: TICAGRELOR
     Indication: Product used for unknown indication
     Dosage: 1 DOSAGE FORM
     Route: 065
  58. TICAGRELOR [Suspect]
     Active Substance: TICAGRELOR
     Indication: Prinzmetal angina
     Dosage: 2 DOSAGE FORM
     Route: 048
  59. TICAGRELOR [Suspect]
     Active Substance: TICAGRELOR
     Indication: Migraine
     Dosage: 1 DOSAGE FORM
     Route: 048
  60. TICAGRELOR [Suspect]
     Active Substance: TICAGRELOR
     Dosage: 2 DOSAGE FORM, DAILY
     Route: 048
  61. TICAGRELOR [Suspect]
     Active Substance: TICAGRELOR
     Dosage: 1 DOSAGE FORM 1 EVERY 12 HOURS
     Route: 048
  62. TICAGRELOR [Suspect]
     Active Substance: TICAGRELOR
     Dosage: 2 DOSAGE FORM
     Route: 065
  63. TICAGRELOR [Suspect]
     Active Substance: TICAGRELOR
     Dosage: 1 DOSAGE FORM, (1 EVERY 5 DAYS)
     Route: 048
  64. TICAGRELOR [Suspect]
     Active Substance: TICAGRELOR
     Dosage: 1 DOSAGE FORM, DAILY (1 EVERY 1 DAYS)
     Route: 065
  65. TICAGRELOR [Suspect]
     Active Substance: TICAGRELOR
     Dosage: 2 DOSAGE FORM,(1 EVERY 12 HOURS)
     Route: 065
  66. TICAGRELOR [Suspect]
     Active Substance: TICAGRELOR
     Dosage: 2 DOSAGE FORM (1 EVERY 1 DAY) (REPEATED 2 TIME).
     Route: 065
  67. TICAGRELOR [Suspect]
     Active Substance: TICAGRELOR
     Dosage: 1 DOSAGE FORM (1 EVERY 1 DAY) ORAL
     Route: 048
  68. TICAGRELOR [Suspect]
     Active Substance: TICAGRELOR
     Dosage: 1 DOSAGE FORM,(1 EVERY 12 HOURS)
     Route: 048
  69. CICLOPIROX [Suspect]
     Active Substance: CICLOPIROX\TOCOPHEROL
     Indication: Product used for unknown indication
     Dosage: 1 DOSAGE FORM, DAILY
     Route: 065
  70. CICLOPIROX [Suspect]
     Active Substance: CICLOPIROX\TOCOPHEROL
     Indication: Prinzmetal angina
     Dosage: UNK
     Route: 065
  71. CICLOPIROX [Suspect]
     Active Substance: CICLOPIROX\TOCOPHEROL
     Indication: Migraine
     Dosage: 1 DOSAGE FORM
     Route: 048
  72. CICLOPIROX [Suspect]
     Active Substance: CICLOPIROX\TOCOPHEROL
     Dosage: 3 DOSAGE FORM, DAILY
     Route: 048
  73. CICLOPIROX [Suspect]
     Active Substance: CICLOPIROX\TOCOPHEROL
     Dosage: UNK, DAILY (1 EVERY 1 DAYS)
     Route: 065
  74. CICLOPIROX [Suspect]
     Active Substance: CICLOPIROX\TOCOPHEROL
     Dosage: 1 DOSAGE FORM, DAILY
     Route: 048
  75. CICLOPIROX [Suspect]
     Active Substance: CICLOPIROX\TOCOPHEROL
     Dosage: UNK
     Route: 048
  76. CICLOPIROX [Suspect]
     Active Substance: CICLOPIROX\TOCOPHEROL
     Dosage: 1 DOSAGE FORM
     Route: 065
  77. CICLOPIROX [Suspect]
     Active Substance: CICLOPIROX\TOCOPHEROL
     Indication: Product used for unknown indication
     Dosage: 1 EVERY 1 DAYS
     Route: 067
  78. CICLOPIROX [Suspect]
     Active Substance: CICLOPIROX\TOCOPHEROL
     Indication: Prinzmetal angina
  79. CICLOPIROX [Suspect]
     Active Substance: CICLOPIROX\TOCOPHEROL
     Indication: Migraine
  80. CLONAZEPAM [Suspect]
     Active Substance: CLONAZEPAM
     Indication: Product used for unknown indication
     Dosage: 1 DOSAGE FORM
     Route: 048
  81. CLONAZEPAM [Suspect]
     Active Substance: CLONAZEPAM
     Indication: Prinzmetal angina
     Dosage: UNK
     Route: 065
  82. CLONAZEPAM [Suspect]
     Active Substance: CLONAZEPAM
     Indication: Migraine
     Dosage: 3 DOSAGE FORM
     Route: 048
  83. CLONAZEPAM [Suspect]
     Active Substance: CLONAZEPAM
     Dosage: 1 DOSAGE FORM 1 EVERY 8 HOURS
     Route: 048
  84. CLONAZEPAM [Suspect]
     Active Substance: CLONAZEPAM
     Dosage: 3 DOSAGE FORM, DAILY
     Route: 048
  85. CLONAZEPAM [Suspect]
     Active Substance: CLONAZEPAM
     Dosage: 3 DOSAGE FORM, Q8H (1 EVERY 8 HOURS)
     Route: 048
  86. CLONAZEPAM [Suspect]
     Active Substance: CLONAZEPAM
     Dosage: 1 MILLIGRAM
     Route: 065
  87. CLONAZEPAM [Suspect]
     Active Substance: CLONAZEPAM
     Dosage: 1 DOSAGE FORM, DAILY (1 EVERY 1 DAYS)
     Route: 048
  88. CLONAZEPAM [Suspect]
     Active Substance: CLONAZEPAM
     Dosage: 0.5 MILLIGRAM
     Route: 065
  89. CLONAZEPAM [Suspect]
     Active Substance: CLONAZEPAM
     Dosage: 1 DOSAGE FORM,1 EVERY 8 HOURS
     Route: 065
  90. CLONAZEPAM [Suspect]
     Active Substance: CLONAZEPAM
     Dosage: 1 DOSAGE FORM (DOSAGE REGIMEN WAS REPORTED 2 TIMES)
     Route: 065
  91. CLONAZEPAM [Suspect]
     Active Substance: CLONAZEPAM
     Dosage: 1 DOSAGE FORM, 1 EVERY 8 HOURS (DOSAGE REGIMEN WAS REPORTED 2 TIMES)
     Route: 065
  92. CLONAZEPAM [Suspect]
     Active Substance: CLONAZEPAM
     Dosage: (1 EVERY 24 HOURS)
     Route: 065
  93. TESTOSTERONE [Suspect]
     Active Substance: TESTOSTERONE
     Indication: Product used for unknown indication
     Dosage: 0.5 MILLILITER, DAILY
     Route: 030
  94. TESTOSTERONE [Suspect]
     Active Substance: TESTOSTERONE
     Dosage: 0.5 MILLILITER 1 EVERY 2 WEEKS (DOSAGE REGIMEN WAS REPORTED 4 TIMES).
     Route: 030
  95. TESTOSTERONE [Suspect]
     Active Substance: TESTOSTERONE
     Dosage: 1 MILLILITER
     Route: 030
  96. TESTOSTERONE [Suspect]
     Active Substance: TESTOSTERONE
     Dosage: 5 MILLILITER 1 EVERY 2 WEEKS
     Route: 030
  97. TESTOSTERONE [Suspect]
     Active Substance: TESTOSTERONE
     Dosage: 1 DOSAGE FORM 1EVERY 12 HOURS
     Route: 030
  98. TESTOSTERONE [Suspect]
     Active Substance: TESTOSTERONE
     Dosage: 5 MILLILITER
     Route: 030
  99. TESTOSTERONE [Suspect]
     Active Substance: TESTOSTERONE
     Dosage: 1 DOSAGE FORM
     Route: 030
  100. TESTOSTERONE [Suspect]
     Active Substance: TESTOSTERONE
     Dosage: 0.5 MILLILITER
     Route: 030
  101. TESTOSTERONE [Suspect]
     Active Substance: TESTOSTERONE
     Dosage: 5 MILLILITER  1 EVERY 1 WEEKS
     Route: 030
  102. TESTOSTERONE [Suspect]
     Active Substance: TESTOSTERONE
     Dosage: UNK
     Route: 030
  103. TESTOSTERONE [Suspect]
     Active Substance: TESTOSTERONE
     Dosage: 5 MILLILITER 1 EVERY 1 WEEKS
     Route: 065
  104. TESTOSTERONE [Suspect]
     Active Substance: TESTOSTERONE
     Dosage: 0.5 MILLILITER
     Route: 065
  105. TESTOSTERONE [Suspect]
     Active Substance: TESTOSTERONE
     Dosage: 1 DOSAGE FORM 1EVERY 2 DAYS
     Route: 030
  106. TESTOSTERONE [Suspect]
     Active Substance: TESTOSTERONE
     Dosage: UNK (DOSAGE REGIMEN WAS REPORTED 4 TIMES)
     Route: 030
  107. TESTOSTERONE [Suspect]
     Active Substance: TESTOSTERONE
     Dosage: 1 DOSAGE1 DOSAGE FORM 1EVERY 12 HOURS (DOSAGE REGIMEN WAS REPORTED 4 TIMES) FORM 1EVERY 12 HOURS (DO
     Route: 030
  108. DEXILANT [Suspect]
     Active Substance: DEXLANSOPRAZOLE
     Indication: Product used for unknown indication
     Dosage: 1 DOSAGE FORM
     Route: 065
  109. DEXILANT [Suspect]
     Active Substance: DEXLANSOPRAZOLE
     Dosage: 0.5 MILLILITER, DAILY (DOSAGE REGIMEN WAS REPORTED 3 TIMES)
     Route: 065
  110. DEXILANT [Suspect]
     Active Substance: DEXLANSOPRAZOLE
     Dosage: 0.5 MILLILITER
     Route: 065
  111. DEXILANT [Suspect]
     Active Substance: DEXLANSOPRAZOLE
     Dosage: 1 DOSAGE FORM, DAILY (DOSAGE REGIMEN WAS REPORTED 8 TIMES)
     Route: 048
  112. DILTIAZEM [Suspect]
     Active Substance: DILTIAZEM
     Indication: Product used for unknown indication
     Dosage: 1 DOSAGE FORM
     Route: 065
  113. DILTIAZEM [Suspect]
     Active Substance: DILTIAZEM
     Dosage: 1 DOSAGE FORM, DAILY
     Route: 048
  114. DILTIAZEM [Suspect]
     Active Substance: DILTIAZEM
     Dosage: 1 DOSAGE FORM
     Route: 048
  115. DILTIAZEM [Suspect]
     Active Substance: DILTIAZEM
     Dosage: 1 DOSAGE FORM, DAILY (1 EVERY 24 HOURS)  (DOSAGE REGIMEN WAS REPORTED 5 TIMES)
     Route: 065
  116. DILTIAZEM [Suspect]
     Active Substance: DILTIAZEM
     Dosage: 1 DOSAGE FORM DAILY (1 EVERY 24 HOURS) (DOSAGE REGIMEN WAS REPORTED 3 TIMES)
     Route: 065
  117. DILTIAZEM [Suspect]
     Active Substance: DILTIAZEM
     Dosage: UNK1 DOSAGE FORM (DOSAGE REGIMEN WAS REPORTED 3 TIMES)
     Route: 065
  118. HYDROCORTISONE [Suspect]
     Active Substance: HYDROCORTISONE
     Indication: Product used for unknown indication
     Dosage: UNK
     Route: 065
  119. HYDROCORTISONE [Suspect]
     Active Substance: HYDROCORTISONE
     Dosage: 1 DOSAGE FORM DAILY (DOSAGE REGIMEN WAS REPORTED 2 TIMES)
     Route: 061
  120. HYDROCORTISONE [Suspect]
     Active Substance: HYDROCORTISONE
     Dosage: 1 DOSAGE FORM
     Route: 061
  121. ESCITALOPRAM [Suspect]
     Active Substance: ESCITALOPRAM OXALATE
     Indication: Prinzmetal angina
     Dosage: UNK (DOSAGE REGIMEN WAS REPORTED 5 TIMES)
     Route: 065
  122. ESCITALOPRAM [Suspect]
     Active Substance: ESCITALOPRAM OXALATE
     Indication: Migraine
     Dosage: 1 DOSAGE FORM, DAILY
     Route: 065
  123. ESCITALOPRAM [Suspect]
     Active Substance: ESCITALOPRAM OXALATE
     Dosage: 1 DOSAGE FORM
     Route: 065
  124. ESCITALOPRAM [Suspect]
     Active Substance: ESCITALOPRAM OXALATE
     Dosage: 1 DOSAGE FORM 1 EVERY 1 DAYS (DOSAGE REGIMEN WAS REPORTED 4 TIMES)
     Route: 065
  125. ESCITALOPRAM [Suspect]
     Active Substance: ESCITALOPRAM OXALATE
     Dosage: 1 EVERY 1 DAYS
     Route: 065
  126. TAMSULOSIN HYDROCHLORIDE [Suspect]
     Active Substance: TAMSULOSIN HYDROCHLORIDE
     Indication: Product used for unknown indication
     Dosage: 1 DOSAGE FORM
     Route: 065
  127. TAMSULOSIN HYDROCHLORIDE [Suspect]
     Active Substance: TAMSULOSIN HYDROCHLORIDE
     Indication: Prinzmetal angina
     Dosage: 1 DOSAGE FORM, DAILY
     Route: 048
  128. TAMSULOSIN HYDROCHLORIDE [Suspect]
     Active Substance: TAMSULOSIN HYDROCHLORIDE
     Indication: Migraine
     Dosage: 1 DOSAGE FORM
     Route: 048
  129. TAMSULOSIN HYDROCHLORIDE [Suspect]
     Active Substance: TAMSULOSIN HYDROCHLORIDE
     Dosage: 1 DOSAGE FORM, Q6H (1 EVERY 6 HOURS)
     Route: 048
  130. TAMSULOSIN HYDROCHLORIDE [Suspect]
     Active Substance: TAMSULOSIN HYDROCHLORIDE
     Dosage: 1 DOSAGE FORM, DAILY
     Route: 065
  131. NITROGLYCERIN [Suspect]
     Active Substance: NITROGLYCERIN
     Indication: Prinzmetal angina
     Dosage: 1 DOSAGE FORM 1 EVERY 8 HOURS
     Route: 048
  132. NITROGLYCERIN [Suspect]
     Active Substance: NITROGLYCERIN
     Dosage: 1 DOSAGE FORM
     Route: 048
  133. NITROGLYCERIN [Suspect]
     Active Substance: NITROGLYCERIN
     Dosage: 1 DOSAGE FORM DAILY
     Route: 048
  134. NITROGLYCERIN [Suspect]
     Active Substance: NITROGLYCERIN
     Dosage: 1 DOSAGE FORM 1 EVERY 4 DAYS
     Route: 048
  135. NITROGLYCERIN [Suspect]
     Active Substance: NITROGLYCERIN
     Dosage: 1 DOSAGE FORM 1 EVERY 6 HOURS (DOSAGE REGIMEN WAS REPORTED 3 TIMES)
     Route: 048
  136. NITROGLYCERIN [Suspect]
     Active Substance: NITROGLYCERIN
     Dosage: UNK
     Route: 048
  137. NITROGLYCERIN [Suspect]
     Active Substance: NITROGLYCERIN
     Dosage: 1 DOSAGE FORM, DAILY (1 EVERY 1 DAY) (DOSAGE REGIMEN WAS REPORTED 2 TIMES)
     Route: 065
  138. NITROGLYCERIN [Suspect]
     Active Substance: NITROGLYCERIN
     Dosage: UNK
     Route: 065
  139. NITROGLYCERIN [Suspect]
     Active Substance: NITROGLYCERIN
     Dosage: 1 EVERY 1 DAYS
     Route: 048
  140. NITROGLYCERIN [Suspect]
     Active Substance: NITROGLYCERIN
     Dosage: 1 DOSAGE FORM,(1 EVERY 8 HOURS)
     Route: 065
  141. NITROGLYCERIN [Suspect]
     Active Substance: NITROGLYCERIN
     Dosage: 1 DOSAGE FORM, DAILY (1 EVERY 1 DAY) (DOSAGE REGIMEN WAS REPORTED 2 TIMES)
     Route: 048
  142. HYDROCORTISONE [Suspect]
     Active Substance: HYDROCORTISONE
     Indication: Product used for unknown indication
     Dosage: UNK (DOSAGE REGIMEN WAS REPORTED 2 TIMES)
     Route: 061
  143. HYDROCORTISONE [Suspect]
     Active Substance: HYDROCORTISONE
     Indication: Prinzmetal angina
     Dosage: 1 DOSAGE FORM, DAILY
     Route: 061
  144. HYDROCORTISONE [Suspect]
     Active Substance: HYDROCORTISONE
     Indication: Migraine
     Dosage: 1 DOSAGE FORM (DOSAGE REGIMEN WAS REPORTED 2 TIMES)
     Route: 061
  145. HYDROCORTISONE [Suspect]
     Active Substance: HYDROCORTISONE
     Dosage: UNK (DOSAGE REGIMEN WAS REPORTED 2 TIMES)
     Route: 061
  146. HYDROCORTISONE [Suspect]
     Active Substance: HYDROCORTISONE
     Dosage: 1 DOSAGE FORM DAILY (1 EVERY 1 DAY) (DOSAGE REGIMEN WAS REPORTED 2 TIMES)
     Route: 065
  147. HYDROCORTISONE [Suspect]
     Active Substance: HYDROCORTISONE
     Dosage: 1 EVERY 1 DAY
     Route: 065
  148. HYDROCORTISONE [Suspect]
     Active Substance: HYDROCORTISONE
     Dosage: 1 DOSAGE FORM DAILY (DOSAGE REGIMEN WAS REPORTED 2 TIMES)
     Route: 065
  149. HYDROCORTISONE [Suspect]
     Active Substance: HYDROCORTISONE
     Dosage: 1 EVERY 1 DAY
     Route: 061
  150. LEVOTHYROXINE SODIUM [Suspect]
     Active Substance: LEVOTHYROXINE SODIUM
     Indication: Product used for unknown indication
     Dosage: UNK
     Route: 065
  151. LEVOTHYROXINE SODIUM [Suspect]
     Active Substance: LEVOTHYROXINE SODIUM
     Dosage: 1 DOSAGE FORM
     Route: 065
  152. LEVOTHYROXINE SODIUM [Suspect]
     Active Substance: LEVOTHYROXINE SODIUM
     Dosage: 1 DOSAGE FORM, DAILY
     Route: 065
  153. LEVOTHYROXINE SODIUM [Suspect]
     Active Substance: LEVOTHYROXINE SODIUM
     Dosage: 1 EVERY 1 DAYS
     Route: 065
  154. METOCLOPRAMIDE HYDROCHLORIDE [Suspect]
     Active Substance: METOCLOPRAMIDE HYDROCHLORIDE
     Indication: Migraine
     Dosage: 1 DOSAGE FORM, DAILY
     Route: 065
  155. METOCLOPRAMIDE HYDROCHLORIDE [Suspect]
     Active Substance: METOCLOPRAMIDE HYDROCHLORIDE
     Indication: Prinzmetal angina
     Dosage: 3 DOSAGE FORM
     Route: 065
  156. METOCLOPRAMIDE HYDROCHLORIDE [Suspect]
     Active Substance: METOCLOPRAMIDE HYDROCHLORIDE
     Dosage: UNK
     Route: 048
  157. METOCLOPRAMIDE HYDROCHLORIDE [Suspect]
     Active Substance: METOCLOPRAMIDE HYDROCHLORIDE
     Dosage: 3 DOSAGE FORM, DAILY
     Route: 065
  158. METOCLOPRAMIDE HYDROCHLORIDE [Suspect]
     Active Substance: METOCLOPRAMIDE HYDROCHLORIDE
     Dosage: 1 DOSAGE FORM
     Route: 065
  159. METOCLOPRAMIDE HYDROCHLORIDE [Suspect]
     Active Substance: METOCLOPRAMIDE HYDROCHLORIDE
     Dosage: 3 DOSAGE FORM 1 EVERY 8 HOURS
     Route: 048
  160. METOCLOPRAMIDE HYDROCHLORIDE [Suspect]
     Active Substance: METOCLOPRAMIDE HYDROCHLORIDE
     Dosage: 1 DOSAGE FORM 1 EVERY 8 HOURS
     Route: 048
  161. METOCLOPRAMIDE HYDROCHLORIDE [Suspect]
     Active Substance: METOCLOPRAMIDE HYDROCHLORIDE
     Dosage: 1 DOSAGE FORM
     Route: 048
  162. METOCLOPRAMIDE HYDROCHLORIDE [Suspect]
     Active Substance: METOCLOPRAMIDE HYDROCHLORIDE
     Dosage: UNK, Q8H (1 EVERY 8 HOURS)
     Route: 065
  163. METOCLOPRAMIDE HYDROCHLORIDE [Suspect]
     Active Substance: METOCLOPRAMIDE HYDROCHLORIDE
     Dosage: 1 EVERY 1 DAYS
     Route: 065
  164. METOCLOPRAMIDE HYDROCHLORIDE [Suspect]
     Active Substance: METOCLOPRAMIDE HYDROCHLORIDE
     Dosage: UNK
     Route: 065
  165. METOCLOPRAMIDE HYDROCHLORIDE [Suspect]
     Active Substance: METOCLOPRAMIDE HYDROCHLORIDE
     Dosage: 1 DOSAGE FORM 1 EVERY 8 HOURS
     Route: 065
  166. METOCLOPRAMIDE HYDROCHLORIDE [Suspect]
     Active Substance: METOCLOPRAMIDE HYDROCHLORIDE
     Dosage: 1 DOSAGE FORM 1 EVERY 1 DAY DOSAGE REGIMEN WAS REPORTED 3 TIMES)
     Route: 065
  167. MOMETASONE FUROATE [Suspect]
     Active Substance: MOMETASONE FUROATE
     Indication: Product used for unknown indication
     Dosage: 1 DOSAGE FORM, DAILY
  168. MOMETASONE FUROATE [Suspect]
     Active Substance: MOMETASONE FUROATE
     Dosage: 1 DOSAGE FORM
     Route: 065
  169. MOMETASONE FUROATE [Suspect]
     Active Substance: MOMETASONE FUROATE
     Dosage: UNK
  170. MOMETASONE FUROATE [Suspect]
     Active Substance: MOMETASONE FUROATE
     Dosage: 1 DOSAGE FORM, DAILY, INTRA-NASAL
     Route: 065
  171. MOMETASONE FUROATE [Suspect]
     Active Substance: MOMETASONE FUROATE
     Dosage: UNK
     Route: 065
  172. MOMETASONE FUROATE [Suspect]
     Active Substance: MOMETASONE FUROATE
     Dosage: DAILY (1 EVERY 1 DAYS)
  173. MOMETASONE FUROATE [Suspect]
     Active Substance: MOMETASONE FUROATE
     Dosage: 1 DOSAGE FORM DAILY (1 EVERY 1 DAYS).
     Route: 065
  174. NITROGLYCERIN [Suspect]
     Active Substance: NITROGLYCERIN
     Indication: Prinzmetal angina
     Dosage: 1 DOSAGE FORM
     Route: 049
  175. NITROGLYCERIN [Suspect]
     Active Substance: NITROGLYCERIN
     Dosage: 1 DOSAGE FORM, DAILY
     Route: 048
  176. NITROGLYCERIN [Suspect]
     Active Substance: NITROGLYCERIN
     Dosage: UNK
     Route: 048
  177. NITROGLYCERIN [Suspect]
     Active Substance: NITROGLYCERIN
     Dosage: 1 DOSAGE FORM, DAILY
     Route: 065
  178. NITROGLYCERIN [Suspect]
     Active Substance: NITROGLYCERIN
     Dosage: 1 DOSAGE FORM
     Route: 048
  179. NITROGLYCERIN [Suspect]
     Active Substance: NITROGLYCERIN
     Dosage: (INHALATION VAPOUR)
     Route: 048
  180. RAMIPRIL [Suspect]
     Active Substance: RAMIPRIL
     Indication: Product use issue
     Dosage: UNK
     Route: 065
  181. RAMIPRIL [Suspect]
     Active Substance: RAMIPRIL
     Indication: Prinzmetal angina
     Dosage: 4 DOSAGE FORM, DAILY
     Route: 065
  182. RAMIPRIL [Suspect]
     Active Substance: RAMIPRIL
     Indication: Migraine
     Dosage: 1 DOSAGE FORM
     Route: 048
  183. RAMIPRIL [Suspect]
     Active Substance: RAMIPRIL
     Dosage: 1 DOSAGE FORM, DAILY
     Route: 065
  184. RAMIPRIL [Suspect]
     Active Substance: RAMIPRIL
     Dosage: 1 DOSAGE 1 EVERY 6 HOURS
     Route: 065
  185. RAMIPRIL [Suspect]
     Active Substance: RAMIPRIL
     Dosage: 4 DOSAGE FORM
     Route: 048
  186. RAMIPRIL [Suspect]
     Active Substance: RAMIPRIL
     Dosage: (1 EVERY 4 DAY)
     Route: 065
  187. RAMIPRIL [Suspect]
     Active Substance: RAMIPRIL
     Dosage: 1 DOSAGE 1 EVERY 6 HOURS
     Route: 048
  188. RAMIPRIL [Suspect]
     Active Substance: RAMIPRIL
     Dosage: 1 DOSAGE 1 EVERY 4 HOURS
     Route: 065
  189. RAMIPRIL [Suspect]
     Active Substance: RAMIPRIL
     Dosage: 0.25 DOSAGE FORM
     Route: 065
  190. RAMIPRIL [Suspect]
     Active Substance: RAMIPRIL
     Dosage: 1 DOSAGE FORM
     Route: 065
  191. RAMIPRIL [Suspect]
     Active Substance: RAMIPRIL
     Dosage: 4 DOSAGE FORM, DAILY
     Route: 048
  192. RAMIPRIL [Suspect]
     Active Substance: RAMIPRIL
     Dosage: 1 DOSAGE 1 EVERY 6 HOURS
     Route: 048
  193. RAMIPRIL [Suspect]
     Active Substance: RAMIPRIL
     Dosage: (1 EVERY 4 DAY)
     Route: 065
  194. RAMIPRIL [Suspect]
     Active Substance: RAMIPRIL
     Dosage: 1 DOSAGE 1 EVERY 4 HOURS
     Route: 065
  195. RAMIPRIL [Suspect]
     Active Substance: RAMIPRIL
     Dosage: 0.25 DOSAGE FORM
     Route: 065
  196. RAMIPRIL [Suspect]
     Active Substance: RAMIPRIL
     Dosage: 1 EVERY 6 HOURS
     Route: 065
  197. RAMIPRIL [Suspect]
     Active Substance: RAMIPRIL
     Dosage: 10 MILLIGRAM, 1 EVERY 1 DAYS
     Route: 048
  198. ZOPICLONE [Suspect]
     Active Substance: ZOPICLONE
     Indication: Product used for unknown indication
     Dosage: 1 DOSAGE FORM, DAILY
     Route: 048
  199. ZOPICLONE [Suspect]
     Active Substance: ZOPICLONE
     Indication: Prinzmetal angina
     Dosage: 1 DOSAGE FORM
     Route: 065
  200. ZOPICLONE [Suspect]
     Active Substance: ZOPICLONE
     Indication: Migraine
     Dosage: 1 DOSAGE FORM
     Route: 048
  201. ROSUVASTATIN [Suspect]
     Active Substance: ROSUVASTATIN
     Indication: Product used for unknown indication
     Dosage: 1 DOSAGE FORM, DAILY
     Route: 048
  202. ROSUVASTATIN [Suspect]
     Active Substance: ROSUVASTATIN
     Dosage: 1 DOSAGE FORM
     Route: 048
  203. ROSUVASTATIN [Suspect]
     Active Substance: ROSUVASTATIN
     Dosage: 1 DOSAGE FORM
     Route: 048
  204. ROSUVASTATIN [Suspect]
     Active Substance: ROSUVASTATIN
     Dosage: 1 DOSAGE FORM, DAILY
     Route: 065
  205. ROSUVASTATIN [Suspect]
     Active Substance: ROSUVASTATIN
     Dosage: 0.5 MILLILITER (1 EVERY 1 DAYS)
     Route: 065
  206. ROSUVASTATIN [Suspect]
     Active Substance: ROSUVASTATIN
     Dosage: 0.5 MILLILITER
     Route: 065
  207. ROSUVASTATIN [Suspect]
     Active Substance: ROSUVASTATIN
     Dosage: 1 DOSAGE FORM (1 EVERY 8 HOURS)
     Route: 065
  208. ROSUVASTATIN [Suspect]
     Active Substance: ROSUVASTATIN
     Dosage: 3 DOSAGE FORM, DAILY,(1 EVERY 24 HOURS)
     Route: 065
  209. ROSUVASTATIN [Suspect]
     Active Substance: ROSUVASTATIN
     Dosage: 1 DOSAGE FORM (1 EVERY 6 HOURS)
     Route: 065
  210. ROSUVASTATIN [Suspect]
     Active Substance: ROSUVASTATIN
     Dosage: 1.5 DOSAGE FORM, DAILY, (1 EVERY 24 HOUR)
     Route: 065
  211. ROSUVASTATIN [Suspect]
     Active Substance: ROSUVASTATIN
     Dosage: UNK
     Route: 065
  212. ROSUVASTATIN [Suspect]
     Active Substance: ROSUVASTATIN
     Dosage: 2 DOSAGE FORM, DAILY, (1 EVERY 24 HOURS)
     Route: 065
  213. ROSUVASTATIN [Suspect]
     Active Substance: ROSUVASTATIN
     Dosage: UNK
     Route: 061
  214. ROSUVASTATIN [Suspect]
     Active Substance: ROSUVASTATIN
     Dosage: 2 DOSAGE FORM (1 EVERY 12 HOURS)
     Route: 065
  215. ROSUVASTATIN [Suspect]
     Active Substance: ROSUVASTATIN
     Dosage: 1 DOSAGE FORM (1 EVERY 1 DAYS)
     Route: 065
  216. ROSUVASTATIN [Suspect]
     Active Substance: ROSUVASTATIN
     Dosage: 1 DOSAGE FORM (1 EVERY 1 DAYS)
     Route: 048
  217. ROSUVASTATIN [Suspect]
     Active Substance: ROSUVASTATIN
     Dosage: 1 DOSAGE FORM, DAILY,(1 EVERY 24 HOURS)
     Route: 065
  218. ZOPICLONE [Suspect]
     Active Substance: ZOPICLONE
     Indication: Product used for unknown indication
     Dosage: 1 DOSAGE FORM, DAILY
     Route: 065
  219. ZOPICLONE [Suspect]
     Active Substance: ZOPICLONE
     Indication: Prinzmetal angina
     Dosage: UNK
     Route: 065
  220. ZOPICLONE [Suspect]
     Active Substance: ZOPICLONE
     Indication: Migraine
     Dosage: 1 DOSAGE FORM
     Route: 065
  221. ZOPICLONE [Suspect]
     Active Substance: ZOPICLONE
     Dosage: 1 DOSAGE FORM, DAILY
     Route: 048
  222. NITROGLYCERIN [Suspect]
     Active Substance: NITROGLYCERIN
     Indication: Prinzmetal angina
     Dosage: 1 EVERY 1 DAYS
     Route: 048
  223. NITROGLYCERIN [Suspect]
     Active Substance: NITROGLYCERIN
     Dosage: UNKNOWN
     Route: 055
  224. NITROGLYCERIN [Suspect]
     Active Substance: NITROGLYCERIN
     Dosage: UNKNOWN
     Route: 048
  225. BISOPROLOL [Suspect]
     Active Substance: BISOPROLOL\BISOPROLOL FUMARATE
     Indication: Product used for unknown indication
     Dosage: 1 DOSAGE FORM, DAILY (1 EVERY 1 DAYS)
     Route: 065
  226. BISOPROLOL [Suspect]
     Active Substance: BISOPROLOL\BISOPROLOL FUMARATE
     Dosage: UNK
     Route: 065
  227. BISOPROLOL [Suspect]
     Active Substance: BISOPROLOL\BISOPROLOL FUMARATE
     Dosage: 1 DOSAGE FORM
     Route: 065
  228. BISOPROLOL [Suspect]
     Active Substance: BISOPROLOL\BISOPROLOL FUMARATE
     Dosage: 1 DOSAGE FORM, DAILY (1 EVERY 1 DAYS)
     Route: 048
  229. BISOPROLOL [Suspect]
     Active Substance: BISOPROLOL\BISOPROLOL FUMARATE
     Dosage: UNK(DOSAGE REGIMEN WAS REPORTED 2 TIMES).
     Route: 065
  230. BISOPROLOL [Suspect]
     Active Substance: BISOPROLOL\BISOPROLOL FUMARATE
     Dosage: 1 DOSAGE FORM (DOSAGE REGIMEN WAS REPORTED 2 TIMES).
     Route: 065
  231. BISOPROLOL [Suspect]
     Active Substance: BISOPROLOL\BISOPROLOL FUMARATE
     Dosage: 1 DOSAGE FORM DAILY (1 EVERY 1 DAYS) (DOSAGE REGIMEN WAS REPORTED 4 TIMES)
     Route: 065
  232. DILTIAZEM [Suspect]
     Active Substance: DILTIAZEM
     Indication: Product used for unknown indication
     Dosage: UNKNOWN
     Route: 048
  233. DILTIAZEM [Suspect]
     Active Substance: DILTIAZEM
     Indication: Product used for unknown indication
     Dosage: 1 DOSAGE FORM, DAILY (1 EVERY 24 HOURS)
     Route: 065
  234. DILTIAZEM [Suspect]
     Active Substance: DILTIAZEM
     Dosage: 1 DOSAGE FORM, DAILY (1 EVERY 24 HOURS)
     Route: 048
  235. DILTIAZEM [Suspect]
     Active Substance: DILTIAZEM
     Dosage: 1 DOSAGE FORM
     Route: 048
  236. DILTIAZEM [Suspect]
     Active Substance: DILTIAZEM
     Dosage: 1 DOSAGE FORM
     Route: 065
  237. DILTIAZEM [Suspect]
     Active Substance: DILTIAZEM
     Dosage: UNK
     Route: 065
  238. TAMSULOSIN HYDROCHLORIDE [Suspect]
     Active Substance: TAMSULOSIN HYDROCHLORIDE
     Indication: Product used for unknown indication
     Dosage: 1 DOSAGE FORM, DAILY (1 EVERY 1 DAYS)
     Route: 048
  239. TAMSULOSIN HYDROCHLORIDE [Suspect]
     Active Substance: TAMSULOSIN HYDROCHLORIDE
     Indication: Prinzmetal angina
     Dosage: 1 DOSAGE FORM
     Route: 048
  240. TAMSULOSIN HYDROCHLORIDE [Suspect]
     Active Substance: TAMSULOSIN HYDROCHLORIDE
     Indication: Migraine
     Dosage: 1 DOSAGE FORM
     Route: 065
  241. TAMSULOSIN HYDROCHLORIDE [Suspect]
     Active Substance: TAMSULOSIN HYDROCHLORIDE
     Dosage: UNK
     Route: 065
  242. TAMSULOSIN HYDROCHLORIDE [Suspect]
     Active Substance: TAMSULOSIN HYDROCHLORIDE
     Dosage: UNK, DAILY,(1 EVERY 1 DAYS)
     Route: 048
  243. TAMSULOSIN HYDROCHLORIDE [Suspect]
     Active Substance: TAMSULOSIN HYDROCHLORIDE
     Indication: Product used for unknown indication
     Dosage: 1 DOSAGE FORM, DAILY (1 EVERY 1 DAYS)
     Route: 048
  244. TAMSULOSIN HYDROCHLORIDE [Suspect]
     Active Substance: TAMSULOSIN HYDROCHLORIDE
     Indication: Migraine
     Dosage: 1 DOSAGE FORM, DAILY (1 EVERY 1 DAYS)
     Route: 065
  245. TAMSULOSIN HYDROCHLORIDE [Suspect]
     Active Substance: TAMSULOSIN HYDROCHLORIDE
     Indication: Prinzmetal angina
     Dosage: 1 DOSAGE FORM DAILY (1 EVERY 1 DAYS)
     Route: 048
  246. TAMSULOSIN HYDROCHLORIDE [Suspect]
     Active Substance: TAMSULOSIN HYDROCHLORIDE
     Dosage: 1 DOSAGE FORM
     Route: 048
  247. TAMSULOSIN HYDROCHLORIDE [Suspect]
     Active Substance: TAMSULOSIN HYDROCHLORIDE
     Dosage: 1 DOSAGE FORM DAILY (1 EVERY 1 DAYS)
     Route: 065
  248. TAMSULOSIN HYDROCHLORIDE [Suspect]
     Active Substance: TAMSULOSIN HYDROCHLORIDE
     Dosage: UNK
     Route: 065
  249. TAMSULOSIN HYDROCHLORIDE [Suspect]
     Active Substance: TAMSULOSIN HYDROCHLORIDE
     Dosage: DAILY (1 EVERY 1 DAYS)
     Route: 048
  250. ASPIRIN [Concomitant]
     Active Substance: ASPIRIN
     Indication: Prinzmetal angina
     Dosage: 1 DOSAGE FORM, DAILY
     Route: 065
  251. ASPIRIN [Concomitant]
     Active Substance: ASPIRIN
     Indication: Migraine
     Dosage: 81 MILLIGRAM, DAILY
     Route: 065
  252. ASPIRIN [Concomitant]
     Active Substance: ASPIRIN
     Dosage: 1 DOSAGE FORM, DAILY
     Route: 048
  253. BISOPROLOL [Concomitant]
     Active Substance: BISOPROLOL\BISOPROLOL FUMARATE
     Indication: Product used for unknown indication
     Dosage: 1 DOSAGE FORM, DAILY
     Route: 065
  254. BISOPROLOL [Concomitant]
     Active Substance: BISOPROLOL\BISOPROLOL FUMARATE
     Indication: Prinzmetal angina
     Dosage: 1 DOSAGE FORM
     Route: 048
  255. BISOPROLOL [Concomitant]
     Active Substance: BISOPROLOL\BISOPROLOL FUMARATE
     Indication: Migraine
     Dosage: 1 DOSAGE FORM, DAILY (1 EVERY 1 DAYS)
     Route: 048
  256. BENZOYL PEROXIDE [Concomitant]
     Active Substance: BENZOYL PEROXIDE
     Indication: Prinzmetal angina
     Dosage: 1 DOSAGE FORM, DAILY
     Route: 061
  257. BENZOYL PEROXIDE [Concomitant]
     Active Substance: BENZOYL PEROXIDE
     Indication: Migraine
  258. BENZOYL PEROXIDE [Concomitant]
     Active Substance: BENZOYL PEROXIDE
     Indication: Product used for unknown indication
  259. CICLOPIROX [Concomitant]
     Active Substance: CICLOPIROX\TOCOPHEROL
     Indication: Product used for unknown indication
     Dosage: UNK
     Route: 065
  260. CICLOPIROX [Concomitant]
     Active Substance: CICLOPIROX\TOCOPHEROL
     Indication: Prinzmetal angina
  261. CICLOPIROX [Concomitant]
     Active Substance: CICLOPIROX\TOCOPHEROL
     Indication: Migraine
  262. MORNIFLUMATE [Concomitant]
     Active Substance: MORNIFLUMATE
     Indication: Product used for unknown indication
     Dosage: 1 DOSAGE FORM, DAILY
     Route: 065
  263. MORNIFLUMATE [Concomitant]
     Active Substance: MORNIFLUMATE
     Indication: Prinzmetal angina
     Dosage: UNK, DAILY (1 EVERY 1 DAYS)
     Route: 065
  264. MORNIFLUMATE [Concomitant]
     Active Substance: MORNIFLUMATE
     Indication: Migraine
     Dosage: UNK
     Route: 065
  265. RAMIPRIL [Concomitant]
     Active Substance: RAMIPRIL
     Indication: Product used for unknown indication
     Dosage: 0.25 DOSAGE FORM
     Route: 065
  266. RAMIPRIL [Concomitant]
     Active Substance: RAMIPRIL
     Indication: Prinzmetal angina
     Dosage: 1 DOSAGE FORM, DAILY
     Route: 048
  267. RAMIPRIL [Concomitant]
     Active Substance: RAMIPRIL
     Indication: Migraine
     Dosage: 4 DOSAGE FORM, DAILY
     Route: 065
  268. RAMIPRIL [Concomitant]
     Active Substance: RAMIPRIL
     Dosage: 1 DOSAGE FORM
     Route: 065
  269. RAMIPRIL [Concomitant]
     Active Substance: RAMIPRIL
     Dosage: 1 DOSAGE FORM, Q6H (1 EVERY 6 HOURS)
     Route: 065
  270. RAMIPRIL [Concomitant]
     Active Substance: RAMIPRIL
     Dosage: 4 DOSAGE FORM, DAILY
     Route: 048
  271. NITROGLYCERIN [Concomitant]
     Active Substance: NITROGLYCERIN
     Indication: Prinzmetal angina
     Dosage: UNK
     Route: 048
  272. NITROGLYCERIN [Concomitant]
     Active Substance: NITROGLYCERIN
     Indication: Migraine
     Dosage: 1 DOSAGE FORM, DAILY
     Route: 048
  273. BISOPROLOL FUMARATE [Concomitant]
     Active Substance: BISOPROLOL FUMARATE
     Indication: Product used for unknown indication
     Dosage: 1 DOSAGE FORM, DAILY
     Route: 065
  274. BISOPROLOL FUMARATE [Concomitant]
     Active Substance: BISOPROLOL FUMARATE
     Indication: Prinzmetal angina
     Dosage: 1 DOSAGE FORM, DAILY
     Route: 048
  275. BISOPROLOL FUMARATE [Concomitant]
     Active Substance: BISOPROLOL FUMARATE
     Indication: Migraine
     Dosage: 1 DOSAGE FORM
     Route: 048
  276. PREDNISONE [Concomitant]
     Active Substance: PREDNISONE
     Indication: Product used for unknown indication
     Dosage: UNK
     Route: 065
  277. PREDNISONE [Concomitant]
     Active Substance: PREDNISONE
     Indication: Prinzmetal angina
  278. PREDNISONE [Concomitant]
     Active Substance: PREDNISONE
     Indication: Migraine
  279. NITROGLYCERIN [Concomitant]
     Active Substance: NITROGLYCERIN
     Indication: Prinzmetal angina
     Dosage: 1 DOSAGE FORM, DAILY (1 EVERY 1 DAYS)
     Route: 065
  280. NITROGLYCERIN [Concomitant]
     Active Substance: NITROGLYCERIN
     Indication: Migraine
     Dosage: 1 DOSAGE FORM
     Route: 048
  281. NITROGLYCERIN [Concomitant]
     Active Substance: NITROGLYCERIN
     Dosage: 1 EVERY 8 HOURS
     Route: 048
  282. NITROGLYCERIN [Concomitant]
     Active Substance: NITROGLYCERIN
     Dosage: 1 DOSAGE FORM, 1 EVERY 8 HOURS
     Route: 048
  283. NITROGLYCERIN [Concomitant]
     Active Substance: NITROGLYCERIN
     Dosage: 1 DOSAGE FORM, 1 EVERY 6 HOURS
     Route: 048
  284. NITROGLYCERIN [Concomitant]
     Active Substance: NITROGLYCERIN
     Dosage: 1 EVERY 4 DAYS
     Route: 048
  285. NITROGLYCERIN [Concomitant]
     Active Substance: NITROGLYCERIN
     Dosage: UNK
     Route: 048
  286. ACETAMINOPHEN\CODEINE PHOSPHATE [Concomitant]
     Active Substance: ACETAMINOPHEN\CODEINE PHOSPHATE
     Indication: Product used for unknown indication
     Dosage: UNKNOWN
     Route: 065
  287. ACETAMINOPHEN\CODEINE PHOSPHATE [Concomitant]
     Active Substance: ACETAMINOPHEN\CODEINE PHOSPHATE
     Dosage: UNK
     Route: 048
  288. ACETAMINOPHEN [Concomitant]
     Active Substance: ACETAMINOPHEN
     Indication: Prinzmetal angina
     Dosage: 160 MILLIGRAM 1 EVERY 1 DAYS
     Route: 065
  289. ACETAMINOPHEN [Concomitant]
     Active Substance: ACETAMINOPHEN
     Indication: Migraine
     Dosage: 160 MILLIGRAM
     Route: 065
  290. ALPRAZOLAM [Concomitant]
     Active Substance: ALPRAZOLAM
     Indication: Product used for unknown indication
     Dosage: 1 DOSAGE FORM
     Route: 065
  291. ALPRAZOLAM [Concomitant]
     Active Substance: ALPRAZOLAM
     Indication: Prinzmetal angina
     Dosage: UNK
     Route: 065
  292. ALPRAZOLAM [Concomitant]
     Active Substance: ALPRAZOLAM
     Indication: Migraine
  293. AMLODIPINE BESYLATE [Concomitant]
     Active Substance: AMLODIPINE BESYLATE
     Indication: Product used for unknown indication
     Dosage: 2 DOSAGE FORM
     Route: 065
  294. AMLODIPINE BESYLATE [Concomitant]
     Active Substance: AMLODIPINE BESYLATE
     Indication: Prinzmetal angina
     Dosage: 1 EVERY 1 DAYS
     Route: 065
  295. AMLODIPINE BESYLATE [Concomitant]
     Active Substance: AMLODIPINE BESYLATE
     Indication: Migraine
     Dosage: 1 DOSAGE 1 EVERY 1 DAYS
     Route: 065
  296. AMLODIPINE BESYLATE [Concomitant]
     Active Substance: AMLODIPINE BESYLATE
     Dosage: 1 DOSAGE FORM
     Route: 065
  297. AMLODIPINE BESYLATE [Concomitant]
     Active Substance: AMLODIPINE BESYLATE
     Dosage: 1 DOSAGE FORM 1 EVERY 8 HOURS
     Route: 065
  298. BRILINTA [Concomitant]
     Active Substance: TICAGRELOR
     Indication: Prinzmetal angina
     Dosage: 1 DOSAGE FORM
     Route: 065
  299. BRILINTA [Concomitant]
     Active Substance: TICAGRELOR
     Indication: Migraine
     Dosage: 1 EVERY 1 DAYS
     Route: 065
  300. BRILINTA [Concomitant]
     Active Substance: TICAGRELOR
     Dosage: 2 DOSAGE FORM
     Route: 065
  301. BRILINTA [Concomitant]
     Active Substance: TICAGRELOR
     Dosage: 2 DOSAGE FORM 1 EVERY 1 DAY
     Route: 065
  302. BRILINTA [Concomitant]
     Active Substance: TICAGRELOR
     Dosage: 2 DOSAGE FORM
     Route: 048
  303. BRILINTA [Concomitant]
     Active Substance: TICAGRELOR
     Dosage: 1 EVERY 12 HOURS
     Route: 065
  304. BRILINTA [Concomitant]
     Active Substance: TICAGRELOR
     Dosage: 1 DOSAGE FORM 1 EVERY 0.5 DAYS
     Route: 048
  305. CLONAZEPAM [Concomitant]
     Active Substance: CLONAZEPAM
     Indication: Product used for unknown indication
     Dosage: 3 DOSAGE FORM 1 EVERY 1 DAY
     Route: 048
  306. CLONAZEPAM [Concomitant]
     Active Substance: CLONAZEPAM
     Indication: Prinzmetal angina
     Dosage: 3 DOSAGE FORM 1 EVERY 1 DAY
     Route: 065
  307. CLONAZEPAM [Concomitant]
     Active Substance: CLONAZEPAM
     Indication: Migraine
     Dosage: 1 DOSAGE FORM
     Route: 065
  308. CLONAZEPAM [Concomitant]
     Active Substance: CLONAZEPAM
     Dosage: 1 DOSAGE FORM  1 EVERY 1 DAY
     Route: 065
  309. CLONAZEPAM [Concomitant]
     Active Substance: CLONAZEPAM
     Dosage: 1 EVERY 1 DAY
     Route: 065
  310. CLONAZEPAM [Concomitant]
     Active Substance: CLONAZEPAM
     Dosage: 1 EVERY 1 DAY
     Route: 065
  311. CLONAZEPAM [Concomitant]
     Active Substance: CLONAZEPAM
     Dosage: 1 DOSAGE FORM 1 EVERY 8 HOURS
     Route: 065
  312. CLONAZEPAM [Concomitant]
     Active Substance: CLONAZEPAM
     Dosage: 1 EVERY 8 HOURS
     Route: 065
  313. CLONAZEPAM [Concomitant]
     Active Substance: CLONAZEPAM
     Dosage: 3 DOSAGE FORM 1 EVERY 8 HOURS
     Route: 048
  314. CLONAZEPAM [Concomitant]
     Active Substance: CLONAZEPAM
     Dosage: 0.5 MILLIGRAM, 1 EVERY 1 DAY
     Route: 048
  315. CLONAZEPAM [Concomitant]
     Active Substance: CLONAZEPAM
     Dosage: 0.5 MILLIGRAM
     Route: 048
  316. CLONAZEPAM [Concomitant]
     Active Substance: CLONAZEPAM
     Dosage: 1 DOSAGE FORM 1 EVERY .3 DAYS
     Route: 048
  317. CLONAZEPAM [Concomitant]
     Active Substance: CLONAZEPAM
     Dosage: 1 EVERY 8 HOURS
     Route: 048
  318. CODEINE [Concomitant]
     Active Substance: CODEINE
     Indication: Product used for unknown indication
     Dosage: UNK
     Route: 065
  319. TESTOSTERONE [Concomitant]
     Active Substance: TESTOSTERONE
     Indication: Prinzmetal angina
     Dosage: 0.5 MILLILITER, 1 EVERY 2 WEEKS
     Route: 065
  320. TESTOSTERONE [Concomitant]
     Active Substance: TESTOSTERONE
     Indication: Migraine
     Dosage: 0.5 MILLILITER, 1 EVERY 1 DAYS
     Route: 065
  321. TESTOSTERONE [Concomitant]
     Active Substance: TESTOSTERONE
     Dosage: 0.5 MILLILITER
     Route: 065
  322. TESTOSTERONE [Concomitant]
     Active Substance: TESTOSTERONE
     Dosage: 0.5 MILLILITER
     Route: 065
  323. DEXILANT [Concomitant]
     Active Substance: DEXLANSOPRAZOLE
     Indication: Product used for unknown indication
     Dosage: 1 DOSAGE FORM
     Route: 065
  324. DEXILANT [Concomitant]
     Active Substance: DEXLANSOPRAZOLE
     Indication: Prinzmetal angina
     Dosage: 1 EVERY 1 DAYS
     Route: 048
  325. DEXILANT [Concomitant]
     Active Substance: DEXLANSOPRAZOLE
     Indication: Migraine
     Dosage: 1 EVERY 1 DAYS
     Route: 048
  326. DEXILANT [Concomitant]
     Active Substance: DEXLANSOPRAZOLE
     Dosage: 0.5 MILLILITER
     Route: 065
  327. DEXILANT [Concomitant]
     Active Substance: DEXLANSOPRAZOLE
     Dosage: 1 DOSAGE FORM 1 EVERY 1 DAYS
     Route: 065
  328. DEXILANT [Concomitant]
     Active Substance: DEXLANSOPRAZOLE
     Dosage: 1 DOSAGE FORM 1 EVERY 1 DAYS
     Route: 065
  329. DEXILANT [Concomitant]
     Active Substance: DEXLANSOPRAZOLE
     Dosage: 0.5 MILLILITER, 1 EVERY 1 DAYS
     Route: 065
  330. DILTIAZEM [Concomitant]
     Active Substance: DILTIAZEM
     Indication: Product used for unknown indication
     Dosage: 1 DOSAGE FORM
     Route: 065
  331. DILTIAZEM [Concomitant]
     Active Substance: DILTIAZEM
     Indication: Prinzmetal angina
     Dosage: 1 DOSAGE FORM 1 EVERY 1 DAYS
     Route: 065
  332. DILTIAZEM [Concomitant]
     Active Substance: DILTIAZEM
     Indication: Migraine
     Dosage: 1 EVERY 1 DAYS
     Route: 065
  333. DILTIAZEM [Concomitant]
     Active Substance: DILTIAZEM
     Dosage: 1 DOSAGE FORM 1 EVERY 1 DAYS
     Route: 048
  334. DILTIAZEM [Concomitant]
     Active Substance: DILTIAZEM
     Dosage: 1 EVERY 1 DAYS
     Route: 048
  335. HYDROCORTISONE [Concomitant]
     Active Substance: HYDROCORTISONE
     Indication: Product used for unknown indication
     Dosage: 1 DOSAGE FORM
     Route: 061
  336. HYDROCORTISONE [Concomitant]
     Active Substance: HYDROCORTISONE
     Indication: Prinzmetal angina
     Dosage: 1 DOSAGE FORM  1 EVERY 1 DAYS
     Route: 061
  337. HYDROCORTISONE [Concomitant]
     Active Substance: HYDROCORTISONE
     Indication: Migraine
     Dosage: 1 EVERY 1 DAYS
     Route: 061
  338. HYDROCORTISONE [Concomitant]
     Active Substance: HYDROCORTISONE
     Dosage: 1 DOSAGE FORM  1 EVERY 1 DAYS
     Route: 061
  339. HYDROCORTISONE [Concomitant]
     Active Substance: HYDROCORTISONE
     Dosage: UNK
     Route: 065
  340. ESCITALOPRAM [Concomitant]
     Active Substance: ESCITALOPRAM OXALATE
     Indication: Prinzmetal angina
     Dosage: UNK
     Route: 065
  341. ESCITALOPRAM [Concomitant]
     Active Substance: ESCITALOPRAM OXALATE
     Indication: Migraine
     Dosage: 1 DOSAGE FORM 1 EVERY 1 DAYS
     Route: 065
  342. ESCITALOPRAM [Concomitant]
     Active Substance: ESCITALOPRAM OXALATE
     Dosage: 1 EVERY 1 DAYS
     Route: 065
  343. ESCITALOPRAM [Concomitant]
     Active Substance: ESCITALOPRAM OXALATE
     Dosage: 0.5 MILLILITER, 1 EVERY 1 DAYS
     Route: 030
  344. NITROGLYCERIN [Concomitant]
     Active Substance: NITROGLYCERIN
     Indication: Prinzmetal angina
     Dosage: 1 EVERY 1 DAYS
     Route: 048
  345. NITROGLYCERIN [Concomitant]
     Active Substance: NITROGLYCERIN
     Indication: Migraine
     Dosage: UNK
     Route: 065
  346. NITROGLYCERIN [Concomitant]
     Active Substance: NITROGLYCERIN
     Dosage: UNK
     Route: 065
  347. NITROGLYCERIN [Concomitant]
     Active Substance: NITROGLYCERIN
     Dosage: 1 DOSAGE FORM
     Route: 048
  348. NITROGLYCERIN [Concomitant]
     Active Substance: NITROGLYCERIN
     Dosage: 1 DOSAGE FORM
     Route: 048
  349. NITROGLYCERIN [Concomitant]
     Active Substance: NITROGLYCERIN
     Dosage: 1 EVERY 8 HOURS
     Route: 065
  350. NITROGLYCERIN [Concomitant]
     Active Substance: NITROGLYCERIN
     Dosage: 1 DOSAGE FORM 1 EVERY 1 DAYS
     Route: 048
  351. NITROGLYCERIN [Concomitant]
     Active Substance: NITROGLYCERIN
     Dosage: 1 DOSAGE FORM 1 EVERY 1 DAYS
     Route: 065
  352. NITROGLYCERIN [Concomitant]
     Active Substance: NITROGLYCERIN
     Dosage: 1 EVERY 4 DAYS
     Route: 048
  353. HYDROCORTISONE BUTYRATE [Concomitant]
     Active Substance: HYDROCORTISONE BUTYRATE
     Indication: Prinzmetal angina
     Dosage: 1 DOSAGE FORM 1 EVERY 1 DAYS
     Route: 061
  354. HYDROCORTISONE BUTYRATE [Concomitant]
     Active Substance: HYDROCORTISONE BUTYRATE
     Indication: Migraine
     Dosage: 1 DOSAGE FORM 1 EVERY 1 DAYS
     Route: 065
  355. HYDROMORPHONE [Concomitant]
     Active Substance: HYDROMORPHONE
     Indication: Prinzmetal angina
     Dosage: UNK
     Route: 065
  356. HYDROMORPHONE [Concomitant]
     Active Substance: HYDROMORPHONE
     Indication: Migraine
  357. LEVOTHYROXINE SODIUM [Concomitant]
     Active Substance: LEVOTHYROXINE SODIUM
     Indication: Prinzmetal angina
     Dosage: UNK
     Route: 065
  358. LEVOTHYROXINE SODIUM [Concomitant]
     Active Substance: LEVOTHYROXINE SODIUM
     Indication: Migraine
     Dosage: 1 DOSAGE FORM
     Route: 065
  359. LEVOTHYROXINE SODIUM [Concomitant]
     Active Substance: LEVOTHYROXINE SODIUM
     Dosage: 1 DOSAGE FORM  1 EVERY 1 DAYS
     Route: 065
  360. LEVOTHYROXINE SODIUM [Concomitant]
     Active Substance: LEVOTHYROXINE SODIUM
     Dosage: 1 EVERY 1 DAYS
     Route: 065
  361. METOCLOPRAMIDE HYDROCHLORIDE [Concomitant]
     Active Substance: METOCLOPRAMIDE HYDROCHLORIDE
     Indication: Migraine
     Dosage: 1 EVERY 1 DAY
     Route: 065
  362. METOCLOPRAMIDE HYDROCHLORIDE [Concomitant]
     Active Substance: METOCLOPRAMIDE HYDROCHLORIDE
     Indication: Prinzmetal angina
     Dosage: 3 DOSAGE FORM 1 EVERY 1 DAY
     Route: 065
  363. METOCLOPRAMIDE HYDROCHLORIDE [Concomitant]
     Active Substance: METOCLOPRAMIDE HYDROCHLORIDE
     Dosage: 3 DOSAGE FORM 1 EVERY 1 DAY
     Route: 048
  364. METOCLOPRAMIDE HYDROCHLORIDE [Concomitant]
     Active Substance: METOCLOPRAMIDE HYDROCHLORIDE
     Dosage: 1 DOSAGE FORM 1 EVERY 1 DAY
     Route: 065
  365. METOCLOPRAMIDE HYDROCHLORIDE [Concomitant]
     Active Substance: METOCLOPRAMIDE HYDROCHLORIDE
     Dosage: 1 EVERY 1 DAY
     Route: 048
  366. METOCLOPRAMIDE HYDROCHLORIDE [Concomitant]
     Active Substance: METOCLOPRAMIDE HYDROCHLORIDE
     Dosage: 1 DOSAGE FORM 1 EVERY 8 HOURS
     Route: 065
  367. METOCLOPRAMIDE HYDROCHLORIDE [Concomitant]
     Active Substance: METOCLOPRAMIDE HYDROCHLORIDE
     Dosage: 1 DOSAGE FORM 1 EVERY 8 HOURS
     Route: 048
  368. METOCLOPRAMIDE HYDROCHLORIDE [Concomitant]
     Active Substance: METOCLOPRAMIDE HYDROCHLORIDE
     Dosage: 1 DOSAGE FORM 1 EVERY 8 HOURS
     Route: 048
  369. METOCLOPRAMIDE HYDROCHLORIDE [Concomitant]
     Active Substance: METOCLOPRAMIDE HYDROCHLORIDE
     Dosage: 1 EVERY 8 HOURS
     Route: 048
  370. METOCLOPRAMIDE HYDROCHLORIDE [Concomitant]
     Active Substance: METOCLOPRAMIDE HYDROCHLORIDE
     Dosage: 1 DOSAGE FORM  1 EVERY 0.3 DAYS
     Route: 065
  371. METOCLOPRAMIDE HYDROCHLORIDE [Concomitant]
     Active Substance: METOCLOPRAMIDE HYDROCHLORIDE
     Dosage: 3 DOSAGE FORM
     Route: 065
  372. METOCLOPRAMIDE HYDROCHLORIDE [Concomitant]
     Active Substance: METOCLOPRAMIDE HYDROCHLORIDE
     Dosage: 3 DOSAGE FORM  1 EVERY 8 HOURS
     Route: 048
  373. METOCLOPRAMIDE HYDROCHLORIDE [Concomitant]
     Active Substance: METOCLOPRAMIDE HYDROCHLORIDE
     Dosage: 3 DOSAGE FORM 1 EVERY 0.3 DAYS
     Route: 065
  374. MOMETASONE FUROATE [Concomitant]
     Active Substance: MOMETASONE FUROATE
     Indication: Prinzmetal angina
     Dosage: 1 EVERY 1 DAYS
  375. MOMETASONE FUROATE [Concomitant]
     Active Substance: MOMETASONE FUROATE
     Indication: Migraine
     Dosage: 1 DOSAGE FORM 1 EVERY 1 DAYS
  376. MOMETASONE FUROATE [Concomitant]
     Active Substance: MOMETASONE FUROATE
     Dosage: 1 DOSAGE FORM
     Route: 065
  377. NASONEX [Concomitant]
     Active Substance: MOMETASONE FUROATE
     Indication: Prinzmetal angina
     Dosage: 1 DOSAGE FORM  1 EVERY 1 DAYS
     Route: 065
  378. NASONEX [Concomitant]
     Active Substance: MOMETASONE FUROATE
     Indication: Migraine
     Dosage: 1 DOSAGE FORM  1 EVERY 1 DAYS
     Route: 065
  379. NASONEX [Concomitant]
     Active Substance: MOMETASONE FUROATE
     Dosage: 1 EVERY 1 DAYS
  380. NASONEX [Concomitant]
     Active Substance: MOMETASONE FUROATE
     Dosage: 1 DOSAGE FORM 1 EVERY 1 DAYS
  381. NASONEX [Concomitant]
     Active Substance: MOMETASONE FUROATE
     Dosage: UNK
     Route: 065
  382. RAMIPRIL [Concomitant]
     Active Substance: RAMIPRIL
     Indication: Product used for unknown indication
     Dosage: 1 EVERY 4 DAYS
     Route: 048
  383. ZOPICLONE [Concomitant]
     Active Substance: ZOPICLONE
     Indication: Product used for unknown indication
     Dosage: 1 DOSAGE FORM
     Route: 065
  384. ZOPICLONE [Concomitant]
     Active Substance: ZOPICLONE
     Indication: Prinzmetal angina
     Dosage: 1 DOSAGE FORM
     Route: 048
  385. ZOPICLONE [Concomitant]
     Active Substance: ZOPICLONE
     Indication: Migraine
     Dosage: 1 DOSAGE FORM  1 EVERY 1 DAYS
     Route: 065
  386. ZOPICLONE [Concomitant]
     Active Substance: ZOPICLONE
     Dosage: 1 EVERY 1 DAYS
     Route: 048
  387. ZOPICLONE [Concomitant]
     Active Substance: ZOPICLONE
     Dosage: UNK
     Route: 065
  388. ZOPICLONE [Concomitant]
     Active Substance: ZOPICLONE
     Dosage: 1 DOSAGE FORM 1 EVERY 1 DAYS
     Route: 048
  389. ROSUVASTATIN CALCIUM [Concomitant]
     Active Substance: ROSUVASTATIN CALCIUM
     Indication: Prinzmetal angina
     Dosage: 1 EVERY 1 DAYS
     Route: 065
  390. ROSUVASTATIN CALCIUM [Concomitant]
     Active Substance: ROSUVASTATIN CALCIUM
     Indication: Migraine
     Dosage: 1 DOSAGE FORM 1 EVERY 1 DAYS
     Route: 065
  391. ROSUVASTATIN CALCIUM [Concomitant]
     Active Substance: ROSUVASTATIN CALCIUM
     Dosage: 1 DOSAGE FORM 1 EVERY 1 DAYS
     Route: 048
  392. ROSUVASTATIN CALCIUM [Concomitant]
     Active Substance: ROSUVASTATIN CALCIUM
     Dosage: UNK
     Route: 048
  393. ROSUVASTATIN CALCIUM [Concomitant]
     Active Substance: ROSUVASTATIN CALCIUM
     Dosage: 1 EVERY 1 DAYS
     Route: 048
  394. TRAZODONE HYDROCHLORIDE [Concomitant]
     Active Substance: TRAZODONE HYDROCHLORIDE
     Indication: Prinzmetal angina
     Dosage: 1 EVERY 1 DAYS
     Route: 065
  395. TRAZODONE HYDROCHLORIDE [Concomitant]
     Active Substance: TRAZODONE HYDROCHLORIDE
     Indication: Migraine
     Dosage: 1 DOSAGE FORM 1 EVERY 1 DAYS
     Route: 065
  396. TRAZODONE HYDROCHLORIDE [Concomitant]
     Active Substance: TRAZODONE HYDROCHLORIDE
     Dosage: UNK
     Route: 048

REACTIONS (4)
  - Device malfunction [Recovered/Resolved]
  - Device dislocation [Recovered/Resolved]
  - Drug ineffective [Recovered/Resolved]
  - Product use in unapproved indication [Recovered/Resolved]
